FAERS Safety Report 7625547-6 (Version None)
Quarter: 2011Q3

REPORT INFORMATION
  Report Type: 
  Country: None (occurrence: None)
  Receive Date: 20110721
  Receipt Date: 20110713
  Transmission Date: 20111222
  Serious: Yes (Hospitalization, Other)
  Sender: FDA-Public Use
  Company Number: US-ASTELLAS-2011US004040

PATIENT
  Age: 34 Year
  Sex: Female

DRUGS (7)
  1. PROGRAF [Suspect]
     Indication: RENAL AND PANCREAS TRANSPLANT
     Dosage: UNK
     Route: 065
  2. ANTI-THYMOCYTE GLOBULIN RABBIT NOS [Concomitant]
     Indication: RENAL AND PANCREAS TRANSPLANT
     Dosage: 6 MG/KG, UNKNOWN/D
     Route: 065
  3. MYCOPHENOLATE MOFETIL [Concomitant]
     Dosage: 900 MG, BID
     Route: 065
  4. PREDNISONE [Concomitant]
     Indication: RENAL AND PANCREAS TRANSPLANT
     Dosage: UNK
     Route: 065
  5. MYCOPHENOLATE MOFETIL [Concomitant]
     Indication: RENAL AND PANCREAS TRANSPLANT
     Dosage: UNK MG, UNKNOWN/D
     Route: 065
  6. PREDNISONE [Concomitant]
     Dosage: 5 MG, UID/QD
     Route: 065
  7. METHYLPREDNISOLONE [Concomitant]
     Indication: RENAL AND PANCREAS TRANSPLANT
     Dosage: UNK
     Route: 065

REACTIONS (4)
  - KIDNEY TRANSPLANT REJECTION [None]
  - SPLENIC VEIN THROMBOSIS [None]
  - DRUG INEFFECTIVE [None]
  - THROMBOTIC MICROANGIOPATHY [None]
